FAERS Safety Report 19465911 (Version 2)
Quarter: 2021Q3

REPORT INFORMATION
  Report Type: Spontaneous
  Country: BR (occurrence: BR)
  Receive Date: 20210627
  Receipt Date: 20210731
  Transmission Date: 20211014
  Serious: Yes (Other)
  Sender: FDA-Public Use
  Company Number: NVSC2021BR121437

PATIENT
  Sex: Male
  Weight: 78 kg

DRUGS (15)
  1. NPH INSULIN [Concomitant]
     Active Substance: INSULIN BEEF
     Indication: DIABETES MELLITUS
     Dosage: UNK (3 APPLICATIONS A DAY (MORNING, LUNCH AND EVENING))
     Route: 058
     Dates: start: 2005
  2. INSULIN [Concomitant]
     Active Substance: INSULIN NOS
     Indication: DIABETES MELLITUS
     Dosage: UNK, QD
     Route: 058
     Dates: start: 2005
  3. CARVEDILOL. [Concomitant]
     Active Substance: CARVEDILOL
     Indication: HYPERTENSION
     Dosage: 1 DF, QD
     Route: 048
     Dates: start: 2017
  4. AMLODIPINE [Concomitant]
     Active Substance: AMLODIPINE BESYLATE
     Indication: HYPERTENSION
     Dosage: 1 DF, QD
     Route: 048
     Dates: start: 2017
  5. CLONAZEPAM. [Concomitant]
     Active Substance: CLONAZEPAM
     Indication: INSOMNIA
     Dosage: 1 DF, QD (5 YEARS AGO)
     Route: 048
     Dates: start: 2016
  6. DIOVAN [Suspect]
     Active Substance: VALSARTAN
     Dosage: 1 DF, QD (160 MG)
     Route: 048
     Dates: start: 202104
  7. DOXAZOSIN MESYLATE. [Concomitant]
     Active Substance: DOXAZOSIN MESYLATE
     Indication: PROSTATIC DISORDER
     Dosage: 1 DF, QD (3 MONTHS AGO)
     Route: 048
     Dates: start: 202102
  8. DORMEC [Concomitant]
     Indication: ANTICOAGULANT THERAPY
     Dosage: 1 DF, QD (MORE THAN 20 YEARS AGO)
     Route: 048
     Dates: start: 2001
  9. SUSTRATE [Concomitant]
     Active Substance: PROPATYL NITRATE
     Indication: HYPERTENSION
     Dosage: 1 DF, QD
     Route: 048
     Dates: start: 2017
  10. FINASTERIDE. [Concomitant]
     Active Substance: FINASTERIDE
     Indication: PROSTATIC DISORDER
     Dosage: 1 DF, QD (AT NIGHT) (2 YEARS AGO)
     Route: 048
     Dates: start: 2019
  11. DIOVAN [Suspect]
     Active Substance: VALSARTAN
     Indication: HYPERTENSION
     Dosage: 1 DF, QD (320 MG)
     Route: 048
     Dates: start: 2020, end: 2020
  12. HYDROCHLOROTIAZID [Concomitant]
     Indication: HYPERTENSION
     Dosage: 1 DF, QD
     Route: 048
     Dates: start: 2020
  13. FUROSEMIDE. [Concomitant]
     Active Substance: FUROSEMIDE
     Indication: HYPERTENSION
     Dosage: 1 DF, QD (2 YEARS AGO)
     Route: 048
     Dates: start: 2019
  14. CLOPIDOGREL [Concomitant]
     Active Substance: CLOPIDOGREL BISULFATE
     Indication: ANTICOAGULANT THERAPY
     Dosage: 1 DF, QD (A LONG TIME AGO)
     Route: 048
  15. SIMVASTATINE [Concomitant]
     Active Substance: SIMVASTATIN
     Indication: ANTICOAGULANT THERAPY
     Dosage: 1 DF, QD (AT NIGHT) (4 YEARS AGO)
     Route: 048
     Dates: start: 2017

REACTIONS (3)
  - Coronary artery occlusion [Recovered/Resolved]
  - Blood pressure decreased [Recovered/Resolved]
  - Chest pain [Recovered/Resolved]

NARRATIVE: CASE EVENT DATE: 2020
